FAERS Safety Report 11056085 (Version 2)
Quarter: 2015Q3

REPORT INFORMATION
  Report Type: Other
  Country: FR (occurrence: FR)
  Receive Date: 20150422
  Receipt Date: 20150924
  Transmission Date: 20151125
  Serious: Yes (Hospitalization, Other)
  Sender: FDA-Public Use
  Company Number: FR-SHIRE-FR201502193

PATIENT
  Age: 56 Year
  Sex: Male
  Weight: 70 kg

DRUGS (8)
  1. TANGANIL                           /00129601/ [Concomitant]
     Indication: VERTIGO
     Dosage: 500 MG, 2X/DAY:BID
     Route: 065
     Dates: start: 20150302
  2. HYDREA [Suspect]
     Active Substance: HYDROXYUREA
     Indication: ESSENTIAL THROMBOCYTHAEMIA
     Dosage: 2 DF, 1X/DAY:QD
     Route: 065
  3. KARDEGIC [Concomitant]
     Active Substance: ASPIRIN LYSINE
     Indication: PRODUCT USED FOR UNKNOWN INDICATION
     Dosage: 160 MG, UNKNOWN
     Route: 065
     Dates: start: 20150412
  4. PRIMPERAN [Concomitant]
     Active Substance: METOCLOPRAMIDE HYDROCHLORIDE
     Indication: NAUSEA
     Dosage: UNK UNK, AS REQ^D
     Route: 065
     Dates: start: 20150302
  5. ACUPAN [Concomitant]
     Active Substance: NEFOPAM HYDROCHLORIDE
     Indication: PRODUCT USED FOR UNKNOWN INDICATION
     Dosage: UNK, AS REQ^D
     Route: 065
  6. HYDREA [Suspect]
     Active Substance: HYDROXYUREA
     Dosage: 1 DF, UNKNOWN
     Route: 065
  7. XAGRID [Suspect]
     Active Substance: ANAGRELIDE HYDROCHLORIDE
     Indication: ESSENTIAL THROMBOCYTHAEMIA
     Dosage: 2 MG (FOUR 0.5 MG CAPSULES), 1X/DAY:QD
     Route: 048
     Dates: start: 20150309
  8. KARDEGIC [Concomitant]
     Active Substance: ASPIRIN LYSINE
     Dosage: 75 MG, UNKNOWN
     Route: 065
     Dates: end: 20150302

REACTIONS (17)
  - Fatigue [Not Recovered/Not Resolved]
  - Vomiting [Unknown]
  - Headache [Recovered/Resolved]
  - Asthenia [Unknown]
  - Vertigo [Unknown]
  - Pain in extremity [Unknown]
  - Peripheral sensory neuropathy [Unknown]
  - Vision blurred [Unknown]
  - Malaise [Unknown]
  - Pain [Unknown]
  - Nervous system disorder [Unknown]
  - Nausea [Unknown]
  - Myalgia [Unknown]
  - Ischaemic stroke [Unknown]
  - Dyshidrotic eczema [Unknown]
  - Anxiety [Unknown]
  - Activities of daily living impaired [Not Recovered/Not Resolved]

NARRATIVE: CASE EVENT DATE: 201503
